FAERS Safety Report 17276540 (Version 1)
Quarter: 2020Q1

REPORT INFORMATION
  Report Type: Spontaneous
  Country: US (occurrence: US)
  Receive Date: 20200116
  Receipt Date: 20200116
  Transmission Date: 20200409
  Serious: Yes (Death)
  Sender: FDA-Public Use
  Company Number: US-PFIZER INC-2020018069

PATIENT
  Age: 83 Year
  Sex: Female

DRUGS (8)
  1. FENTANYL CITRATE. [Suspect]
     Active Substance: FENTANYL CITRATE
     Dosage: UNK
     Route: 048
  2. PRIMIDONE. [Suspect]
     Active Substance: PRIMIDONE
     Dosage: UNK (DERMAL)
  3. GABAPENTIN. [Suspect]
     Active Substance: GABAPENTIN
     Dosage: UNK (DERMAL)
  4. DABIGATRAN [Suspect]
     Active Substance: DABIGATRAN
     Dosage: UNK (DERMAL)
  5. PRIMIDONE. [Suspect]
     Active Substance: PRIMIDONE
     Dosage: UNK
     Route: 048
  6. GABAPENTIN. [Suspect]
     Active Substance: GABAPENTIN
     Dosage: UNK
     Route: 048
  7. FENTANYL CITRATE. [Suspect]
     Active Substance: FENTANYL CITRATE
     Dosage: UNK (DERMAL)
  8. DABIGATRAN [Suspect]
     Active Substance: DABIGATRAN
     Dosage: UNK
     Route: 048

REACTIONS (1)
  - Death [Fatal]

NARRATIVE: CASE EVENT DATE: 2018
